FAERS Safety Report 8008209-5 (Version None)
Quarter: 2011Q4

REPORT INFORMATION
  Report Type: 
  Country: None (occurrence: None)
  Receive Date: 20111227
  Receipt Date: 20111222
  Transmission Date: 20120403
  Serious: Yes (Other)
  Sender: FDA-Public Use
  Company Number: IT-ROCHE-1024355

PATIENT
  Sex: Female

DRUGS (2)
  1. ACTEMRA [Suspect]
     Indication: RHEUMATOID ARTHRITIS
     Route: 042
     Dates: start: 20080127
  2. CELECOXIB [Concomitant]
     Dosage: AS NEEDED
     Route: 048
     Dates: start: 20081001

REACTIONS (1)
  - RECTAL HAEMORRHAGE [None]
